FAERS Safety Report 22103551 (Version 2)
Quarter: 2024Q1

REPORT INFORMATION
  Report Type: Spontaneous
  Country: US (occurrence: US)
  Receive Date: 20230316
  Receipt Date: 20240318
  Transmission Date: 20240410
  Serious: No
  Sender: FDA-Public Use
  Company Number: US-SMITH AND NEPHEW, INC-2022SMT00016

PATIENT
  Sex: Male

DRUGS (3)
  1. COLLAGENASE SANTYL [Suspect]
     Active Substance: COLLAGENASE CLOSTRIDIUM HISTOLYTICUM
     Indication: Wound
     Dosage: MIX WITH BACTRIM
     Dates: start: 202112
  2. COLLAGENASE SANTYL [Suspect]
     Active Substance: COLLAGENASE CLOSTRIDIUM HISTOLYTICUM
     Dosage: UNK
  3. BACTRIM [Concomitant]
     Active Substance: SULFAMETHOXAZOLE\TRIMETHOPRIM
     Dosage: MIXED WITH SANTYL

REACTIONS (7)
  - Wound infection [Not Recovered/Not Resolved]
  - Administration site discomfort [Unknown]
  - Wound complication [Unknown]
  - Application site irritation [Unknown]
  - Off label use [Unknown]
  - Pain [Unknown]
  - Discharge [Unknown]
